FAERS Safety Report 5019309-6 (Version None)
Quarter: 2006Q2

REPORT INFORMATION
  Report Type: 
  Country: None (occurrence: None)
  Receive Date: 20060606
  Receipt Date: 20060526
  Transmission Date: 20061013
  Serious: Yes (Hospitalization)
  Sender: FDA-Public Use
  Company Number: US-JNJFOC-20060500370

PATIENT
  Sex: Female

DRUGS (5)
  1. REMICADE [Suspect]
     Route: 042
  2. REMICADE [Suspect]
     Indication: CROHN'S DISEASE
     Dosage: TWO INFUSIONS ON UNSPECIFIED DATES.
     Route: 042
  3. ALLOPURINOL [Concomitant]
  4. PREDNISONE [Concomitant]
  5. BENADRYL [Concomitant]

REACTIONS (4)
  - ASTHENIA [None]
  - FLUSHING [None]
  - PAIN IN EXTREMITY [None]
  - WALKING DISABILITY [None]
